FAERS Safety Report 9224115 (Version 1)
Quarter: 2013Q1

REPORT INFORMATION
  Report Type: Spontaneous
  Country: US (occurrence: None)
  Receive Date: 20120914
  Receipt Date: 20120914
  Transmission Date: 20140127
  Serious: Yes (Other)
  Sender: FDA-Public Use
  Company Number: JPI-P-018298

PATIENT
  Age: 41 Year
  Sex: Female
  Weight: 68.04 kg

DRUGS (9)
  1. XYREM (500 MILLIGRAM/MILLILITERS, SOLUTION) (SODIUM OXYBATE) [Suspect]
     Indication: CATAPLEXY
     Dosage: 4.5 GM (2.25 GM, 2 IN 1 D), ORAL?
     Route: 048
     Dates: start: 201111, end: 20111211
  2. NUVIGIL (ARMODAFINIL) [Concomitant]
  3. EFFEXOR (VENLAFAXINE) [Concomitant]
  4. ADDERALL (AMPHETAMINE AND DEXTROAMPHETAMINE) [Concomitant]
  5. OMEGA 3 [Concomitant]
  6. BALANCED B COMPLEX [Concomitant]
  7. MULTIVITAMINS [Concomitant]
  8. ATIVAN (LOREZEPAM) [Concomitant]
  9. L-METHYLFOLATE CALCIUM [Concomitant]

REACTIONS (26)
  - Depressed level of consciousness [None]
  - Sudden onset of sleep [None]
  - Thirst [None]
  - Stress urinary incontinence [None]
  - Viral pharyngitis [None]
  - Cough [None]
  - Malaise [None]
  - Asthenia [None]
  - Oropharyngeal pain [None]
  - Bruxism [None]
  - Functional gastrointestinal disorder [None]
  - Respiration abnormal [None]
  - Feeling hot [None]
  - Middle insomnia [None]
  - Somnolence [None]
  - Feeling abnormal [None]
  - Headache [None]
  - Drug dose omission [None]
  - Nausea [None]
  - Pyrexia [None]
  - Sluggishness [None]
  - Nocturia [None]
  - Dizziness [None]
  - Muscle spasms [None]
  - Dehydration [None]
  - Enuresis [None]
